FAERS Safety Report 22075771 (Version 1)
Quarter: 2023Q1

REPORT INFORMATION
  Report Type: Spontaneous
  Country: ES (occurrence: None)
  Receive Date: 20230308
  Receipt Date: 20230308
  Transmission Date: 20230417
  Serious: Yes (Hospitalization, Other)
  Sender: FDA-Public Use
  Company Number: ES-Eisai Medical Research-EC-2023-135343

PATIENT
  Age: 46 Year
  Sex: Male

DRUGS (1)
  1. LENVATINIB [Suspect]
     Active Substance: LENVATINIB
     Indication: Huerthle cell carcinoma
     Dosage: UNKNOWN DOSE AND FREQUENCY
     Route: 048

REACTIONS (4)
  - Spontaneous splenic rupture [Recovered/Resolved]
  - Pancreatic haemorrhage [Recovered/Resolved]
  - Gastric haemorrhage [Recovered/Resolved]
  - Alanine aminotransferase increased [Unknown]
